FAERS Safety Report 19936463 (Version 2)
Quarter: 2022Q2

REPORT INFORMATION
  Report Type: Report from Study
  Country: US (occurrence: US)
  Receive Date: 20211009
  Receipt Date: 20220531
  Transmission Date: 20220721
  Serious: Yes (Life-Threatening, Other)
  Sender: FDA-Public Use
  Company Number: US-TAKEDA-2021TUS060569

PATIENT
  Age: 78 Year
  Sex: Male

DRUGS (8)
  1. TEDUGLUTIDE [Suspect]
     Active Substance: TEDUGLUTIDE
     Indication: Short-bowel syndrome
     Dosage: 1.95 MILLIGRAM, QD
     Route: 042
     Dates: start: 20180407, end: 201808
  2. TEDUGLUTIDE [Suspect]
     Active Substance: TEDUGLUTIDE
     Indication: Short-bowel syndrome
     Dosage: 1.95 MILLIGRAM, QD
     Route: 042
     Dates: start: 20180407, end: 201808
  3. TEDUGLUTIDE [Suspect]
     Active Substance: TEDUGLUTIDE
     Indication: Short-bowel syndrome
     Dosage: 1.95 MILLIGRAM, QD
     Route: 042
     Dates: start: 20180407, end: 201808
  4. TEDUGLUTIDE [Suspect]
     Active Substance: TEDUGLUTIDE
     Indication: Short-bowel syndrome
     Dosage: 1.95 MILLIGRAM, QD
     Route: 042
     Dates: start: 20180407, end: 201808
  5. COUMADIN [Concomitant]
     Active Substance: WARFARIN SODIUM
     Indication: Hypercoagulation
     Dosage: 5 MILLIGRAM
     Route: 048
     Dates: start: 20171028
  6. ULTRAM [Concomitant]
     Active Substance: TRAMADOL HYDROCHLORIDE
     Indication: Osteoporosis
     Dosage: 50 MILLIGRAM
     Route: 048
     Dates: start: 20151115
  7. THIAMINE HYDROCHLORIDE [Concomitant]
     Active Substance: THIAMINE HYDROCHLORIDE
     Indication: Hypovitaminosis
     Dosage: 100 MILLIGRAM, QD
     Route: 048
     Dates: start: 20161115, end: 20181031
  8. CREON [Concomitant]
     Active Substance: PANCRELIPASE AMYLASE\PANCRELIPASE LIPASE\PANCRELIPASE PROTEASE
     Indication: Malabsorption
     Dosage: 2 CAP, TID
     Route: 048
     Dates: start: 20180119

REACTIONS (1)
  - Pseudomyxoma peritonei [Recovered/Resolved]

NARRATIVE: CASE EVENT DATE: 20180723
